FAERS Safety Report 14084708 (Version 1)
Quarter: 2017Q4

REPORT INFORMATION
  Report Type: Report from Study
  Country: US (occurrence: US)
  Receive Date: 20171013
  Receipt Date: 20171013
  Transmission Date: 20180321
  Serious: Yes (Hospitalization)
  Sender: FDA-Public Use
  Company Number: US-ROCHE-1957261

PATIENT
  Age: 67 Year
  Sex: Male
  Weight: 122.58 kg

DRUGS (3)
  1. ACTEMRA [Suspect]
     Active Substance: TOCILIZUMAB
     Indication: RHEUMATOID ARTHRITIS
     Route: 058
     Dates: end: 201706
  2. ACTEMRA [Suspect]
     Active Substance: TOCILIZUMAB
     Route: 058
     Dates: start: 201708, end: 20170806
  3. VICODIN [Concomitant]
     Active Substance: ACETAMINOPHEN\HYDROCODONE BITARTRATE

REACTIONS (12)
  - Gastric disorder [Recovered/Resolved]
  - Pain [Unknown]
  - Abscess intestinal [Unknown]
  - Musculoskeletal stiffness [Unknown]
  - Abdominal distension [Unknown]
  - Colonic abscess [Unknown]
  - Rheumatoid arthritis [Unknown]
  - Abdominal pain [Recovered/Resolved]
  - Joint swelling [Unknown]
  - Abdominal pain upper [Unknown]
  - Diverticulitis [Recovered/Resolved]
  - Diarrhoea [Not Recovered/Not Resolved]

NARRATIVE: CASE EVENT DATE: 20170806
